FAERS Safety Report 9082844 (Version 1)
Quarter: 2013Q1

REPORT INFORMATION
  Report Type: Spontaneous
  Country: JP (occurrence: JP)
  Receive Date: 20130130
  Receipt Date: 20130130
  Transmission Date: 20140127
  Serious: Yes (Other)
  Sender: FDA-Public Use
  Company Number: JP-ELI_LILLY_AND_COMPANY-JP201210004076

PATIENT
  Age: 75 Year
  Sex: Female

DRUGS (2)
  1. FORTEO [Suspect]
     Dosage: UNK
     Route: 058
     Dates: start: 20121002
  2. FORTEO [Suspect]
     Dosage: UNK, EACH EVENING
     Route: 058

REACTIONS (3)
  - Fracture [Unknown]
  - Hot flush [Unknown]
  - Fatigue [Unknown]
